FAERS Safety Report 7867013-9 (Version None)
Quarter: 2011Q4

REPORT INFORMATION
  Report Type: 
  Country: None (occurrence: None)
  Receive Date: 20111028
  Receipt Date: 20111021
  Transmission Date: 20120403
  Serious: Yes (Other)
  Sender: FDA-Public Use
  Company Number: US-JNJFOC-20111010137

PATIENT
  Age: 13 Year
  Sex: Male
  Weight: 54.43 kg

DRUGS (2)
  1. ACETAMINOPHEN [Suspect]
     Indication: HEADACHE
     Route: 048
     Dates: start: 20111017, end: 20111017
  2. ACETAMINOPHEN [Suspect]
     Route: 048

REACTIONS (1)
  - HYPERSENSITIVITY [None]
